FAERS Safety Report 6619100-0 (Version None)
Quarter: 2010Q1

REPORT INFORMATION
  Report Type: 
  Country: None (occurrence: None)
  Receive Date: 20100308
  Receipt Date: 20100204
  Transmission Date: 20100710
  Serious: No
  Sender: FDA-Public Use
  Company Number: US-BAYER-201013366NA

PATIENT
  Age: 31 Year
  Sex: Female
  Weight: 98 kg

DRUGS (2)
  1. ULTRAVIST 300 [Suspect]
     Indication: COMPUTERISED TOMOGRAM ABDOMEN
     Dosage: TOTAL DAILY DOSE: 100 ML  UNIT DOSE: 100 ML
     Route: 042
     Dates: start: 20100204, end: 20100204
  2. READI-CAT [Concomitant]
     Route: 048
     Dates: start: 20100204, end: 20100204

REACTIONS (2)
  - RASH [None]
  - VOMITING [None]
